FAERS Safety Report 16198106 (Version 1)
Quarter: 2019Q2

REPORT INFORMATION
  Report Type: Spontaneous
  Country: GB (occurrence: GB)
  Receive Date: 20190415
  Receipt Date: 20190415
  Transmission Date: 20190711
  Serious: Yes (Other)
  Sender: FDA-Public Use
  Company Number: GB-ROCHE-2234636

PATIENT
  Age: 3 Month
  Sex: Male

DRUGS (1)
  1. TAMIFLU [Suspect]
     Active Substance: OSELTAMIVIR PHOSPHATE
     Indication: PRODUCT USED FOR UNKNOWN INDICATION
     Route: 063

REACTIONS (6)
  - Brain neoplasm benign [Unknown]
  - Eye movement disorder [Unknown]
  - Exposure via breast milk [Unknown]
  - Blindness [Unknown]
  - Benign neoplasm [Unknown]
  - Glioma [Unknown]
